FAERS Safety Report 13896977 (Version 1)
Quarter: 2017Q3

REPORT INFORMATION
  Report Type: Spontaneous
  Country: DK (occurrence: DK)
  Receive Date: 20170823
  Receipt Date: 20170823
  Transmission Date: 20171127
  Serious: Yes (Other)
  Sender: FDA-Public Use
  Company Number: DK-MYLANLABS-2017M1051784

PATIENT

DRUGS (2)
  1. CABERGOLINE. [Suspect]
     Active Substance: CABERGOLINE
     Indication: PROLACTIN-PRODUCING PITUITARY TUMOUR
     Dosage: 0.5 MG/WEEK; FOR ONE YEAR; THEN SWITCHED TO BROMOCRIPTINE FOR PREGNANCY AND RESUMED AFTER PREGNANCY
     Route: 065
  2. BROMOCRIPTINE [Suspect]
     Active Substance: BROMOCRIPTINE
     Indication: PROLACTIN-PRODUCING PITUITARY TUMOUR
     Dosage: 2.5 MG/DAY FOR ONE YEAR TILL PREGNANCY, THEN INTERRUPTED
     Route: 065

REACTIONS (2)
  - Mediastinal fibrosis [Not Recovered/Not Resolved]
  - Pulmonary hypertension [Not Recovered/Not Resolved]
